FAERS Safety Report 6436165-X (Version None)
Quarter: 2009Q4

REPORT INFORMATION
  Report Type: 
  Country: None (occurrence: None)
  Receive Date: 20091111
  Receipt Date: 20091104
  Transmission Date: 20100525
  Serious: Yes (Other)
  Sender: FDA-Public Use
  Company Number: US-ROCHE-647211

PATIENT
  Age: 87 Year
  Sex: Male

DRUGS (9)
  1. BONIVA [Suspect]
     Indication: OSTEOPENIA
     Route: 048
     Dates: start: 20061009
  2. PRILOSEC [Suspect]
     Indication: DRUG USE FOR UNKNOWN INDICATION
     Route: 065
  3. COUMADIN [Concomitant]
  4. TOPROL-XL [Concomitant]
  5. HYGROTON [Concomitant]
  6. POTASSIUM CHLORIDE [Concomitant]
  7. HYTRIN [Concomitant]
  8. PRAVACHOL [Concomitant]
  9. CALCIUM CARBONATE [Concomitant]

REACTIONS (4)
  - BONE DENSITY DECREASED [None]
  - FALL [None]
  - OSTEOPOROSIS [None]
  - ROTATOR CUFF SYNDROME [None]
